FAERS Safety Report 13953043 (Version 1)
Quarter: 2017Q3

REPORT INFORMATION
  Report Type: Spontaneous
  Country: US (occurrence: US)
  Receive Date: 20170911
  Receipt Date: 20170911
  Transmission Date: 20171128
  Serious: No
  Sender: FDA-Public Use
  Company Number: US-TEVA-696334USA

PATIENT
  Age: 67 Year
  Sex: Female
  Weight: 86.26 kg

DRUGS (1)
  1. FENTANYL. [Suspect]
     Active Substance: FENTANYL
     Indication: BACK PAIN
     Route: 062

REACTIONS (2)
  - Skin haemorrhage [Unknown]
  - Application site discolouration [Unknown]

NARRATIVE: CASE EVENT DATE: 201608
